FAERS Safety Report 13634537 (Version 1)
Quarter: 2017Q2

REPORT INFORMATION
  Report Type: Spontaneous
  Country: US (occurrence: US)
  Receive Date: 20170531
  Receipt Date: 20170531
  Transmission Date: 20170830
  Serious: No
  Sender: FDA-Public Use
  Company Number: US-ASTELLAS-1636999

PATIENT
  Sex: Male

DRUGS (17)
  1. CARAFATE [Concomitant]
     Active Substance: SUCRALFATE
  2. PRAVACHOL [Concomitant]
     Active Substance: PRAVASTATIN SODIUM
  3. FOLIC ACID. [Concomitant]
     Active Substance: FOLIC ACID
  4. ZOLOFT [Concomitant]
     Active Substance: SERTRALINE HYDROCHLORIDE
  5. CLARITIN [Concomitant]
     Active Substance: LORATADINE
  6. MAGNESIUM OXIDE. [Concomitant]
     Active Substance: MAGNESIUM OXIDE
  7. CARDIZEM CD [Concomitant]
     Active Substance: DILTIAZEM HYDROCHLORIDE
  8. VITAMIN C [Concomitant]
     Active Substance: ASCORBIC ACID
  9. TARCEVA [Suspect]
     Active Substance: ERLOTINIB HYDROCHLORIDE
     Indication: LUNG NEOPLASM MALIGNANT
     Dosage: 2 TABLETS, ONCE DAILY
     Route: 048
     Dates: start: 20140430
  10. ASPIRIN. [Concomitant]
     Active Substance: ASPIRIN
  11. MONOCYCLINE [Concomitant]
  12. ZETIA [Concomitant]
     Active Substance: EZETIMIBE
  13. TOPROL XL [Concomitant]
     Active Substance: METOPROLOL SUCCINATE
  14. TARCEVA [Suspect]
     Active Substance: ERLOTINIB HYDROCHLORIDE
     Indication: METASTASES TO LIVER
  15. NEXIUM [Concomitant]
     Active Substance: ESOMEPRAZOLE MAGNESIUM
  16. CALTRATE [Concomitant]
     Active Substance: CALCIUM CARBONATE
  17. VITAMIN E [Concomitant]
     Active Substance: .ALPHA.-TOCOPHEROL

REACTIONS (1)
  - Malaise [Unknown]
